FAERS Safety Report 8291497-8 (Version None)
Quarter: 2012Q2

REPORT INFORMATION
  Report Type: 
  Country: None (occurrence: None)
  Receive Date: 20120417
  Receipt Date: 20120402
  Transmission Date: 20120825
  Serious: Yes (Other)
  Sender: FDA-Public Use
  Company Number: US-ENDO PHARMACEUTICALS INC.-OPCR20120015

PATIENT
  Sex: Male
  Weight: 88.53 kg

DRUGS (16)
  1. OPANA [Suspect]
     Indication: HIP ARTHROPLASTY
  2. OPANA ER [Suspect]
     Indication: LEG AMPUTATION
  3. OPANA [Suspect]
     Indication: BURNING SENSATION
  4. ROXICODONE [Concomitant]
     Indication: PAIN
  5. OPANA ER [Suspect]
     Indication: BURNING SENSATION
  6. OPANA [Suspect]
     Indication: SPINAL DISORDER
  7. OPANA ER [Concomitant]
     Indication: LEG AMPUTATION
  8. OPANA ER [Concomitant]
     Indication: BURNING SENSATION
  9. OPANA ER [Suspect]
     Indication: SPINAL DISORDER
  10. OPANA ER [Suspect]
     Indication: PAIN
     Route: 048
     Dates: start: 20120301
  11. OPANA [Suspect]
     Indication: LEG AMPUTATION
     Route: 048
     Dates: end: 20120319
  12. OPANA ER [Concomitant]
     Indication: PAIN
     Dosage: UNKNOWN
     Route: 048
  13. OPANA ER [Suspect]
     Indication: HIP ARTHROPLASTY
  14. OPANA [Suspect]
     Indication: PAIN
     Route: 048
     Dates: end: 20120301
  15. OPANA ER [Concomitant]
     Indication: HIP ARTHROPLASTY
  16. OPANA ER [Concomitant]
     Indication: SPINAL DISORDER

REACTIONS (4)
  - WITHDRAWAL SYNDROME [None]
  - MEDICATION RESIDUE [None]
  - HEPATITIS C [None]
  - DRUG INEFFECTIVE [None]
